FAERS Safety Report 10064367 (Version 1)
Quarter: 2014Q2

REPORT INFORMATION
  Report Type: Spontaneous
  Country: US (occurrence: None)
  Receive Date: 20140407
  Receipt Date: 20140407
  Transmission Date: 20141212
  Serious: Yes (Other)
  Sender: FDA-Public Use
  Company Number: None

PATIENT
  Age: 63 Year
  Sex: Male
  Weight: 104.33 kg

DRUGS (2)
  1. ATORVASTATIN 20MG [Suspect]
     Indication: BLOOD CHOLESTEROL INCREASED
     Dosage: 1 TABLET?
     Route: 048
  2. VALSARTAN/HCTZ [Suspect]
     Indication: BLOOD PRESSURE INCREASED
     Dosage: 160 MG / 12.5 MG 1 TABLET ONCE DAILY TAKEN BY MOUTH?
     Route: 048

REACTIONS (2)
  - Blood glucose increased [None]
  - Glycosylated haemoglobin increased [None]
